FAERS Safety Report 7115727-0 (Version None)
Quarter: 2010Q4

REPORT INFORMATION
  Report Type: 
  Country: None (occurrence: None)
  Receive Date: 20101118
  Receipt Date: 20101118
  Transmission Date: 20110411
  Serious: No
  Sender: FDA-Public Use
  Company Number: None

PATIENT
  Age: 25 Year
  Sex: Male

DRUGS (1)
  1. RISPERDAL [Suspect]
     Dosage: 12.5 MG Q2WEEK IM-DELTOID
     Route: 030
     Dates: start: 20101109

REACTIONS (2)
  - DEVICE MALFUNCTION [None]
  - PRODUCT RECONSTITUTION ISSUE [None]
